FAERS Safety Report 5869960-6 (Version None)
Quarter: 2008Q3

REPORT INFORMATION
  Report Type: 
  Country: None (occurrence: None)
  Receive Date: 20080904
  Receipt Date: 20080902
  Transmission Date: 20090109
  Serious: Yes (Death, Hospitalization)
  Sender: FDA-Public Use
  Company Number: PHHY2008IE20021

PATIENT
  Age: 57 Year
  Sex: Male

DRUGS (3)
  1. DIOVAN [Suspect]
     Dosage: 160 MG, UNK
     Route: 048
  2. LIPITOR [Concomitant]
     Dosage: 10 MG, UNK
  3. ASPIRIN [Concomitant]

REACTIONS (3)
  - MALAISE [None]
  - MYOCARDIAL INFARCTION [None]
  - VOMITING [None]
